FAERS Safety Report 15564047 (Version 2)
Quarter: 2018Q4

REPORT INFORMATION
  Report Type: Spontaneous
  Country: KR (occurrence: KR)
  Receive Date: 20181030
  Receipt Date: 20181115
  Transmission Date: 20190205
  Serious: Yes (Hospitalization)
  Sender: FDA-Public Use
  Company Number: KR-009507513-1808KOR005889

PATIENT
  Sex: Female

DRUGS (17)
  1. KEYTRUDA [Suspect]
     Active Substance: PEMBROLIZUMAB
     Dosage: UNK
     Dates: start: 201808
  2. URSA TABLETS [Concomitant]
     Dosage: 3 DF, UNK
     Route: 048
     Dates: start: 20180713, end: 20180723
  3. CIROK [Concomitant]
     Dosage: 2 DF, UNK
     Route: 048
     Dates: start: 20180713, end: 20180723
  4. NUCYNTA [Concomitant]
     Active Substance: TAPENTADOL HYDROCHLORIDE
     Dosage: 2 DF, UNK
     Route: 048
     Dates: start: 20180713, end: 20180723
  5. PANTOLOC [Concomitant]
     Active Substance: PANTOPRAZOLE SODIUM
     Dosage: 1 DF, UNK
     Route: 048
     Dates: start: 20180713, end: 20180723
  6. KEYTRUDA [Suspect]
     Active Substance: PEMBROLIZUMAB
     Indication: METASTASES TO BLADDER
     Dosage: UNK
     Dates: start: 201807
  7. TRANSAMIN [Concomitant]
     Active Substance: TRANEXAMIC ACID
     Dosage: 3 DF, UNK
     Route: 048
     Dates: start: 20180713, end: 20180723
  8. KEYTRUDA [Suspect]
     Active Substance: PEMBROLIZUMAB
     Dosage: UNK
     Dates: start: 201808
  9. KEYTRUDA [Suspect]
     Active Substance: PEMBROLIZUMAB
     Dosage: UNK
     Dates: start: 201809
  10. ULTRACET [Concomitant]
     Active Substance: ACETAMINOPHEN\TRAMADOL HYDROCHLORIDE
     Dosage: 3 DF, UNK
     Route: 048
     Dates: start: 20180713, end: 20180723
  11. KEYTRUDA [Suspect]
     Active Substance: PEMBROLIZUMAB
     Dosage: UNK
     Dates: start: 201810
  12. GODEX (ADENINE HYDROCHLORIDE (+) BIFENDATE (+) CARNITINE OROTATE (+) [Concomitant]
     Dosage: 3 DF, UNK
     Route: 048
     Dates: start: 20180713, end: 20180723
  13. KEYTRUDA [Suspect]
     Active Substance: PEMBROLIZUMAB
     Indication: CERVIX CARCINOMA
     Dosage: UNK
     Dates: start: 201805
  14. KEYTRUDA [Suspect]
     Active Substance: PEMBROLIZUMAB
     Dosage: UNK
     Dates: start: 201809
  15. LYRICA [Concomitant]
     Active Substance: PREGABALIN
     Dosage: 2 DF, UNK
     Route: 048
     Dates: start: 20180713, end: 20180723
  16. KEYTRUDA [Suspect]
     Active Substance: PEMBROLIZUMAB
     Dosage: UNK
     Dates: start: 20180705
  17. TYRENOL [Concomitant]
     Dosage: 1 DF, UNK
     Route: 048
     Dates: start: 20180713, end: 20180723

REACTIONS (2)
  - Product use in unapproved indication [Unknown]
  - Adverse event [Unknown]

NARRATIVE: CASE EVENT DATE: 2018
